FAERS Safety Report 14566392 (Version 3)
Quarter: 2018Q2

REPORT INFORMATION
  Report Type: Spontaneous
  Country: IN (occurrence: IN)
  Receive Date: 20180223
  Receipt Date: 20180515
  Transmission Date: 20180711
  Serious: Yes (Other)
  Sender: FDA-Public Use
  Company Number: IN-JNJFOC-20180225317

PATIENT
  Age: 25 Year
  Sex: Female
  Weight: 44 kg

DRUGS (5)
  1. LINEZOLID. [Suspect]
     Active Substance: LINEZOLID
     Indication: TUBERCULOSIS
     Route: 048
     Dates: start: 201506, end: 20180208
  2. CLOFAZIMINE [Suspect]
     Active Substance: CLOFAZIMINE
     Indication: TUBERCULOSIS
     Route: 048
     Dates: start: 201506
  3. BEDAQUILINE [Suspect]
     Active Substance: BEDAQUILINE
     Indication: TUBERCULOSIS
     Route: 048
     Dates: start: 20170208
  4. DELAMANID [Suspect]
     Active Substance: DELAMANID
     Indication: TUBERCULOSIS
     Route: 048
     Dates: start: 20170208
  5. PYRAZINAMIDE. [Suspect]
     Active Substance: PYRAZINAMIDE
     Indication: TUBERCULOSIS
     Route: 048
     Dates: start: 20170208

REACTIONS (3)
  - Tuberculosis [Unknown]
  - Off label use [Unknown]
  - Optic neuritis [Recovered/Resolved]

NARRATIVE: CASE EVENT DATE: 20180130
